FAERS Safety Report 9511470 (Version 2)
Quarter: 2014Q1

REPORT INFORMATION
  Report Type: Spontaneous
  Country: US (occurrence: None)
  Receive Date: 20130305
  Receipt Date: 20140306
  Transmission Date: 20141002
  Serious: Yes (Other)
  Sender: FDA-Public Use
  Company Number: 163-21880-12112661

PATIENT
  Age: 74 Year
  Sex: Female

DRUGS (1)
  1. REVLIMID [Suspect]
     Indication: PLASMA CELL MYELOMA
     Dosage: 15 MG, 14 IN 21 D, PO?
     Route: 048
     Dates: start: 20121025, end: 2012

REACTIONS (6)
  - Nervousness [None]
  - Feeling hot [None]
  - Rash [None]
  - Pruritus [None]
  - Fatigue [None]
  - Asthenia [None]
